FAERS Safety Report 25999978 (Version 3)
Quarter: 2025Q4

REPORT INFORMATION
  Report Type: Spontaneous
  Country: EU (occurrence: EU)
  Receive Date: 20251105
  Receipt Date: 20251210
  Transmission Date: 20260117
  Serious: Yes (Hospitalization, Other)
  Sender: RANBAXY
  Company Number: EU-SUN PHARMACEUTICAL INDUSTRIES INC-2025R1-534209

PATIENT
  Age: 82 Year
  Sex: Male

DRUGS (2)
  1. LITHIUM [Suspect]
     Active Substance: LITHIUM
     Indication: Bipolar disorder
     Dosage: 400 MILLIGRAM, QD
     Route: 065
     Dates: start: 2018
  2. MIRTAZAPINE [Concomitant]
     Active Substance: MIRTAZAPINE
     Indication: Bipolar disorder
     Dosage: 15 MILLIGRAM, QD
     Route: 065
     Dates: start: 2017

REACTIONS (7)
  - Acute kidney injury [Recovering/Resolving]
  - Chronic kidney disease [Unknown]
  - Confusional state [Unknown]
  - Hypernatraemia [Recovering/Resolving]
  - Hyperparathyroidism [Unknown]
  - Nephrogenic diabetes insipidus [Recovering/Resolving]
  - Vascular dementia [Unknown]
